FAERS Safety Report 8173575-7 (Version None)
Quarter: 2012Q1

REPORT INFORMATION
  Report Type: 
  Country: None (occurrence: None)
  Receive Date: 20120223
  Receipt Date: 20120208
  Transmission Date: 20120608
  Serious: Yes (Hospitalization)
  Sender: FDA-Public Use
  Company Number: B0781028A

PATIENT
  Sex: Female

DRUGS (10)
  1. BISOPROLOL FUMARATE [Concomitant]
  2. NIFEDIPINE [Concomitant]
  3. DIGOXIN [Suspect]
     Indication: PRODUCT USED FOR UNKNOWN INDICATION
     Dosage: .125 MG / PER DAY / ORAL
     Route: 048
     Dates: start: 20020101, end: 20120130
  4. FUROSEMIDE [Concomitant]
  5. RAMIPRIL [Concomitant]
  6. POTASSIUM CHLORIDE [Concomitant]
  7. SPIRONOLACTONE [Concomitant]
  8. WARFARIN SODIUM [Concomitant]
  9. AMIODARONE HYDROCHLORIDE [Concomitant]
  10. PANTOPRAZOLE [Concomitant]

REACTIONS (2)
  - DYSPNOEA [None]
  - CHEST PAIN [None]
